FAERS Safety Report 8536531-2 (Version None)
Quarter: 2012Q3

REPORT INFORMATION
  Report Type: 
  Country: None (occurrence: None)
  Receive Date: 20120725
  Receipt Date: 20120720
  Transmission Date: 20120928
  Serious: Yes (Other)
  Sender: FDA-Public Use
  Company Number: CA-ROCHE-1091289

PATIENT
  Sex: Male
  Weight: 77.18 kg

DRUGS (6)
  1. ZOPICLONE [Concomitant]
  2. AVASTIN [Suspect]
     Indication: GLIOBLASTOMA
     Route: 042
     Dates: start: 20120302
  3. CARBAMAZEPINE [Concomitant]
  4. ESCITALOPRAM [Concomitant]
  5. FINASTERIDE [Concomitant]
     Dosage: SANDOZ FINASTERIDE
  6. AVASTIN [Suspect]
     Dates: start: 20120720

REACTIONS (1)
  - NUCLEAR MAGNETIC RESONANCE IMAGING ABNORMAL [None]
